FAERS Safety Report 7949374-5 (Version None)
Quarter: 2011Q4

REPORT INFORMATION
  Report Type: 
  Country: None (occurrence: None)
  Receive Date: 20111130
  Receipt Date: 20111122
  Transmission Date: 20120403
  Serious: Yes (Hospitalization)
  Sender: FDA-Public Use
  Company Number: US-GLAXOSMITHKLINE-A0930667A

PATIENT
  Age: 61 Year
  Sex: Male

DRUGS (2)
  1. PROMACTA [Suspect]
     Indication: THROMBOCYTOPENIA
     Dosage: 25MG PER DAY
     Route: 048
     Dates: start: 20101201, end: 20110413
  2. IMMUNE GLOBULIN INTRAVENOUS (HUMAN) [Concomitant]

REACTIONS (4)
  - TACHYCARDIA [None]
  - HEPATIC ENCEPHALOPATHY [None]
  - ANAEMIA OF CHRONIC DISEASE [None]
  - RENAL FAILURE CHRONIC [None]
